FAERS Safety Report 18408393 (Version 1)
Quarter: 2020Q4

REPORT INFORMATION
  Report Type: Report from Study
  Country: US (occurrence: US)
  Receive Date: 20201021
  Receipt Date: 20201021
  Transmission Date: 20210114
  Serious: Yes (Hospitalization)
  Sender: FDA-Public Use
  Company Number: US-GLAXOSMITHKLINE-2019-TSO02662-US

PATIENT
  Sex: Female

DRUGS (5)
  1. NIRAPARIB [Suspect]
     Active Substance: NIRAPARIB
     Dosage: 100 MG
     Route: 065
  2. NIRAPARIB [Suspect]
     Active Substance: NIRAPARIB
     Dosage: 300 MG, ONCE DAILY
     Route: 048
  3. NIRAPARIB [Suspect]
     Active Substance: NIRAPARIB
     Indication: OVARIAN CANCER
     Dosage: 300 MG, QD
     Route: 048
     Dates: start: 20190620
  4. NIRAPARIB [Suspect]
     Active Substance: NIRAPARIB
     Dosage: 100 MG, BID
     Route: 065
  5. NIRAPARIB [Suspect]
     Active Substance: NIRAPARIB
     Dosage: 200 MG, QD
     Route: 048

REACTIONS (22)
  - Hospitalisation [Unknown]
  - Hypoaesthesia [Unknown]
  - Dry skin [Unknown]
  - Anxiety [Unknown]
  - Sluggishness [Unknown]
  - Paraesthesia [Not Recovered/Not Resolved]
  - Sputum discoloured [Unknown]
  - Stomatitis [Unknown]
  - Pain [Unknown]
  - Full blood count decreased [Unknown]
  - Arthralgia [Unknown]
  - Secretion discharge [Not Recovered/Not Resolved]
  - Salivary hypersecretion [Unknown]
  - Chest discomfort [Unknown]
  - Headache [Unknown]
  - Adverse drug reaction [Unknown]
  - Dysphagia [Unknown]
  - Chest pain [Unknown]
  - Pain in extremity [Unknown]
  - Illness [Unknown]
  - Abdominal pain [Unknown]
  - Nasopharyngitis [Unknown]
